FAERS Safety Report 7529708-6 (Version None)
Quarter: 2011Q2

REPORT INFORMATION
  Report Type: 
  Country: None (occurrence: None)
  Receive Date: 20110607
  Receipt Date: 20110527
  Transmission Date: 20111010
  Serious: Yes (Other)
  Sender: FDA-Public Use
  Company Number: B0718772A

PATIENT
  Sex: Female

DRUGS (5)
  1. VALPROATE SODIUM [Concomitant]
     Indication: EPILEPSY
     Dosage: 400MG TWICE PER DAY
     Route: 048
     Dates: start: 20110324
  2. KEPPRA [Suspect]
     Dosage: 3000MG PER DAY
     Route: 065
  3. LAMOTRIGINE [Suspect]
     Dosage: 400MG PER DAY
     Route: 048
     Dates: start: 20080523, end: 20100602
  4. KEPPRA [Suspect]
     Dosage: 3500MG PER DAY
     Route: 048
  5. KEPPRA [Suspect]
     Indication: JUVENILE MYOCLONIC EPILEPSY
     Route: 065

REACTIONS (4)
  - MOOD ALTERED [None]
  - CONVULSION [None]
  - THERMAL BURN [None]
  - AGGRESSION [None]
